FAERS Safety Report 16667022 (Version 1)
Quarter: 2019Q3

REPORT INFORMATION
  Report Type: Spontaneous
  Country: EG (occurrence: EG)
  Receive Date: 20190805
  Receipt Date: 20190805
  Transmission Date: 20191004
  Serious: Yes (Other)
  Sender: FDA-Public Use
  Company Number: EG-HIKMA PHARMACEUTICALS USA INC.-EG-H14001-19-04450

PATIENT
  Age: 58 Year
  Sex: Male

DRUGS (3)
  1. GEMZAR [Suspect]
     Active Substance: GEMCITABINE HYDROCHLORIDE
     Indication: BLADDER CANCER
     Dosage: ON DAY 1 AND 8
     Route: 041
     Dates: start: 201812, end: 20190110
  2. CARBOTINOL [Suspect]
     Active Substance: CARBOPLATIN
     Indication: BLADDER CANCER
     Route: 041
     Dates: start: 201812, end: 20190110
  3. CARBOTINOL [Suspect]
     Active Substance: CARBOPLATIN
     Route: 041
     Dates: start: 20190110

REACTIONS (3)
  - Blood urea increased [Unknown]
  - Blood creatinine increased [Unknown]
  - Off label use [Unknown]

NARRATIVE: CASE EVENT DATE: 201812
